FAERS Safety Report 15011362 (Version 1)
Quarter: 2018Q2

REPORT INFORMATION
  Report Type: Spontaneous
  Country: US (occurrence: US)
  Receive Date: 20180522
  Receipt Date: 20180522
  Transmission Date: 20180711
  Serious: No
  Sender: FDA-Public Use
  Company Number: None

PATIENT
  Age: 71 Year
  Sex: Female

DRUGS (9)
  1. OCALIVA [Suspect]
     Active Substance: OBETICHOLIC ACID
     Indication: PRIMARY BILIARY CHOLANGITIS
     Route: 048
     Dates: start: 20170901
  2. WARFARIN [Concomitant]
     Active Substance: WARFARIN
  3. POT [Concomitant]
  4. PANTOPRA [Concomitant]
  5. POT CL [Concomitant]
  6. URSODIOL. [Concomitant]
     Active Substance: URSODIOL
  7. VD3 [Concomitant]
  8. FLUOX [Concomitant]
  9. ATORVAST [Concomitant]

REACTIONS (2)
  - Urticaria [None]
  - Abdominal discomfort [None]
